FAERS Safety Report 20561829 (Version 2)
Quarter: 2022Q3

REPORT INFORMATION
  Report Type: Spontaneous
  Country: FI (occurrence: FI)
  Receive Date: 20220307
  Receipt Date: 20220729
  Transmission Date: 20221026
  Serious: Yes (Hospitalization, Other)
  Sender: FDA-Public Use
  Company Number: FI-PURDUE-USA-2022-0291810

PATIENT
  Age: 3 Decade
  Sex: Male

DRUGS (2)
  1. DEXTROAMPHET SACCHARAT, AMPHET ASPARTATE, DEXTROAMPHET SULFATE AND AMP [Interacting]
     Active Substance: AMPHETAMINE ASPARTATE\AMPHETAMINE SULFATE\DEXTROAMPHETAMINE SACCHARATE\DEXTROAMPHETAMINE SULFATE
     Indication: Product used for unknown indication
     Dosage: UNKNOWN
     Route: 065
  2. BUPRENORPHINE [Interacting]
     Active Substance: BUPRENORPHINE
     Indication: Product used for unknown indication
     Dosage: UNKNOWN
     Route: 042

REACTIONS (8)
  - Myelopathy [Not Recovered/Not Resolved]
  - Rhabdomyolysis [Unknown]
  - Substance abuse [Unknown]
  - Drug interaction [Unknown]
  - Compartment syndrome [Unknown]
  - Somnolence [Unknown]
  - Somnolence [Unknown]
  - Quadriparesis [Unknown]
